FAERS Safety Report 7888069-3 (Version None)
Quarter: 2011Q4

REPORT INFORMATION
  Report Type: 
  Country: None (occurrence: None)
  Receive Date: 20111103
  Receipt Date: 20111031
  Transmission Date: 20120403
  Serious: Yes (Other)
  Sender: FDA-Public Use
  Company Number: US-AMGEN-USASP2011018218

PATIENT
  Age: 70 Year
  Sex: Female
  Weight: 49.887 kg

DRUGS (21)
  1. VITAMIN C                          /00008001/ [Concomitant]
     Dosage: 1000 MG, UNK
  2. CITRACAL PLUS BONE DENSITY BUILDER [Concomitant]
  3. ACETAMINOPHEN [Concomitant]
     Dosage: 500 MG, UNK
  4. SLOW FE [Concomitant]
  5. KEFLEX [Concomitant]
     Dosage: 500 MG, UNK
  6. NEUPOGEN [Suspect]
     Indication: NEUTROPENIA
     Route: 058
     Dates: start: 20110104, end: 20110302
  7. IRON [Concomitant]
  8. POTASSIUM [Concomitant]
     Dosage: 20 MG, QD
  9. FLONASE [Concomitant]
  10. VITAMIN D [Concomitant]
     Dosage: UNK UNIT, UNK
  11. LIPITOR [Concomitant]
     Dosage: 20 MG, UNK
  12. PRADAXA                            /01633202/ [Concomitant]
     Dosage: 150 MG, UNK
  13. CISPLATIN [Concomitant]
     Indication: NON-SMALL CELL LUNG CANCER STAGE II
  14. LASIX [Concomitant]
     Dosage: 20 MG, QD
  15. CLARITIN                           /00413701/ [Concomitant]
  16. ACTONEL [Concomitant]
     Dosage: 35 MG, UNK
  17. NAVELBINE [Concomitant]
     Indication: NON-SMALL CELL LUNG CANCER STAGE II
  18. TOPROL-XL [Concomitant]
     Dosage: 25 MG, QD
  19. CO Q-10 [Concomitant]
     Dosage: 100 MG, UNK
  20. FISH OIL [Concomitant]
     Dosage: 1200 MG, UNK
  21. TOBRADEX [Concomitant]

REACTIONS (16)
  - HYPERLIPIDAEMIA [None]
  - WHITE BLOOD CELL COUNT INCREASED [None]
  - DIASTOLIC DYSFUNCTION [None]
  - HEART VALVE INCOMPETENCE [None]
  - ARRHYTHMIA [None]
  - ATRIAL FIBRILLATION [None]
  - PERICARDIAL EFFUSION [None]
  - MITRAL VALVE PROLAPSE [None]
  - PALPITATIONS [None]
  - TRICUSPID VALVE PROLAPSE [None]
  - TACHYCARDIA [None]
  - AORTIC VALVE INCOMPETENCE [None]
  - CARDIAC ANEURYSM [None]
  - ERYTHEMA NODOSUM [None]
  - DYSPNOEA [None]
  - EXTRASYSTOLES [None]
